FAERS Safety Report 8258974-7 (Version None)
Quarter: 2012Q2

REPORT INFORMATION
  Report Type: 
  Country: None (occurrence: None)
  Receive Date: 20120403
  Receipt Date: 20120403
  Transmission Date: 20120825
  Serious: Yes (Hospitalization)
  Sender: FDA-Public Use
  Company Number: None

PATIENT
  Sex: Female
  Weight: 106.1 kg

DRUGS (1)
  1. TAXOL [Suspect]
     Dosage: 160 MG

REACTIONS (1)
  - FEBRILE NEUTROPENIA [None]
